FAERS Safety Report 7495237-1 (Version None)
Quarter: 2011Q2

REPORT INFORMATION
  Report Type: 
  Country: None (occurrence: None)
  Receive Date: 20110522
  Receipt Date: 20110509
  Transmission Date: 20111010
  Serious: Yes (Hospitalization)
  Sender: FDA-Public Use
  Company Number: US-ELI_LILLY_AND_COMPANY-US201102006882

PATIENT
  Sex: Female

DRUGS (10)
  1. PREDNISONE [Concomitant]
  2. THEOPHYLLINE [Concomitant]
  3. MUCINEX [Concomitant]
  4. VENTOLIN [Concomitant]
  5. FORTEO [Suspect]
     Dosage: 20 UG, DAILY (1/D)
     Route: 065
  6. FLUTICASONE PROPIONATE [Concomitant]
     Indication: HYPERSENSITIVITY
  7. FORTEO [Suspect]
     Indication: OSTEOPOROSIS
     Dosage: 20 UG, DAILY (1/D)
     Route: 065
     Dates: start: 20100625
  8. ALBUTEROL [Concomitant]
  9. SYMBICORT [Concomitant]
  10. NASONEX [Concomitant]

REACTIONS (5)
  - HAND FRACTURE [None]
  - CHRONIC OBSTRUCTIVE PULMONARY DISEASE [None]
  - DYSPNOEA [None]
  - FLUSHING [None]
  - FALL [None]
